FAERS Safety Report 14599886 (Version 1)
Quarter: 2018Q1

REPORT INFORMATION
  Report Type: Spontaneous
  Country: US (occurrence: US)
  Receive Date: 20180304
  Receipt Date: 20180304
  Transmission Date: 20180509
  Serious: Yes (Other)
  Sender: FDA-Public Use
  Company Number: None

PATIENT
  Age: 58 Year
  Sex: Male
  Weight: 95.85 kg

DRUGS (11)
  1. CLOPIDOGREL [Concomitant]
     Active Substance: CLOPIDOGREL BISULFATE
     Dates: start: 20130301
  2. BOSULIF [Suspect]
     Active Substance: BOSUTINIB MONOHYDRATE
     Indication: CHRONIC MYELOID LEUKAEMIA
     Route: 048
     Dates: start: 20180222, end: 20180223
  3. GLYBURIDE 5MG [Concomitant]
     Dates: start: 20130301
  4. METFORMIN [Concomitant]
     Active Substance: METFORMIN HYDROCHLORIDE
     Dates: start: 20130301
  5. RAMIPRIL 5MG [Concomitant]
     Active Substance: RAMIPRIL
     Dates: start: 20130301
  6. AMLODIPINE [Concomitant]
     Active Substance: AMLODIPINE BESYLATE
     Dates: start: 20130301
  7. METOPROLOL TARTRATE 50MG [Concomitant]
     Active Substance: METOPROLOL TARTRATE
     Dates: start: 20130301
  8. ASPIRIN 325MG [Concomitant]
     Active Substance: ASPIRIN
     Dates: start: 20180101
  9. ZOLPIDEM [Concomitant]
     Active Substance: ZOLPIDEM\ZOLPIDEM TARTRATE
     Dates: start: 20130301
  10. MAGNESIUM 400MG [Concomitant]
     Active Substance: MAGNESIUM
     Dates: start: 20170301
  11. ROSUVASTATIN 40MG [Concomitant]
     Active Substance: ROSUVASTATIN
     Dates: start: 20180101

REACTIONS (1)
  - Peripheral swelling [None]

NARRATIVE: CASE EVENT DATE: 20180224
